FAERS Safety Report 15436506 (Version 3)
Quarter: 2018Q4

REPORT INFORMATION
  Report Type: Spontaneous
  Country: US (occurrence: US)
  Receive Date: 20180927
  Receipt Date: 20181228
  Transmission Date: 20190204
  Serious: No
  Sender: FDA-Public Use
  Company Number: US-INDIVIOR LIMITED-INDV-113447-2018

PATIENT
  Age: 43 Year
  Sex: Female

DRUGS (8)
  1. SUBUTEX [Suspect]
     Active Substance: BUPRENORPHINE HYDROCHLORIDE
     Dosage: 16MG, UNK
     Route: 065
     Dates: start: 2018
  2. SUBUTEX [Suspect]
     Active Substance: BUPRENORPHINE HYDROCHLORIDE
     Dosage: ONE TO TWO 8 MG PER DAY, UNK
     Route: 065
     Dates: start: 20180806, end: 20180911
  3. SUBLOCADE [Concomitant]
     Active Substance: BUPRENORPHINE
     Indication: DRUG USE DISORDER
     Dosage: 100 MG, QMO
     Route: 065
     Dates: start: 20180912
  4. SUBLOCADE [Suspect]
     Active Substance: BUPRENORPHINE
     Indication: DRUG USE DISORDER
     Dosage: 300 MG, QMO (1ST AND 2ND INJECTION)
     Route: 065
     Dates: start: 20180718, end: 20180912
  5. SUBUTEX [Suspect]
     Active Substance: BUPRENORPHINE HYDROCHLORIDE
     Indication: PRODUCT USED FOR UNKNOWN INDICATION
     Dosage: 16MG UNK
     Route: 065
  6. SUBUTEX [Suspect]
     Active Substance: BUPRENORPHINE HYDROCHLORIDE
     Dosage: 28MG, UNK
     Route: 065
     Dates: end: 201807
  7. SUBUTEX [Suspect]
     Active Substance: BUPRENORPHINE HYDROCHLORIDE
     Indication: DRUG WITHDRAWAL SYNDROME
     Dosage: 18MG UNK
     Route: 065
  8. SUBUTEX [Suspect]
     Active Substance: BUPRENORPHINE HYDROCHLORIDE
     Dosage: 24MG, UNK
     Route: 065
     Dates: end: 201807

REACTIONS (3)
  - Drug withdrawal syndrome [Recovered/Resolved]
  - Intentional product use issue [Recovered/Resolved]
  - Therapeutic response shortened [Recovered/Resolved]

NARRATIVE: CASE EVENT DATE: 201807
